FAERS Safety Report 15851035 (Version 1)
Quarter: 2019Q1

REPORT INFORMATION
  Report Type: Spontaneous
  Country: US (occurrence: US)
  Receive Date: 20190122
  Receipt Date: 20190122
  Transmission Date: 20190417
  Serious: No
  Sender: FDA-Public Use
  Company Number: US-TEVA-2018-US-990848

PATIENT
  Sex: Female

DRUGS (1)
  1. PRAVASTATIN SODIUM TABLETS, USP [Suspect]
     Active Substance: PRAVASTATIN SODIUM
     Route: 065

REACTIONS (1)
  - Diarrhoea [Unknown]
